FAERS Safety Report 7499486-8 (Version None)
Quarter: 2011Q2

REPORT INFORMATION
  Report Type: 
  Country: None (occurrence: None)
  Receive Date: 20110524
  Receipt Date: 20110516
  Transmission Date: 20111010
  Serious: Yes (Hospitalization)
  Sender: FDA-Public Use
  Company Number: PHFR2011GB02224

PATIENT
  Sex: Male

DRUGS (4)
  1. CLOZARIL [Suspect]
     Dosage: UNK MG, UNK
     Route: 048
     Dates: start: 20110407
  2. ZOPICLONE [Suspect]
     Dosage: UNK DF, UNK
  3. CLOZARIL [Suspect]
     Indication: SCHIZOPHRENIA
     Dosage: 350 MG,
     Route: 048
     Dates: start: 20100410
  4. CITALOPRAM HYDROBROMIDE [Suspect]
     Dosage: UNK DF, UNK

REACTIONS (1)
  - OVERDOSE [None]
